FAERS Safety Report 20719985 (Version 3)
Quarter: 2025Q2

REPORT INFORMATION
  Report Type: Spontaneous
  Country: CA (occurrence: CA)
  Receive Date: 20220418
  Receipt Date: 20250521
  Transmission Date: 20250717
  Serious: Yes (Other)
  Sender: PFIZER
  Company Number: CA-PFIZER INC-202200549803

PATIENT
  Age: 60 Year
  Sex: Male

DRUGS (3)
  1. INLYTA [Interacting]
     Active Substance: AXITINIB
     Indication: Metastatic renal cell carcinoma
     Dosage: UNK, 2X/DAY (3MG AM, 4MG PM)
     Route: 048
     Dates: start: 20211201
  2. INLYTA [Interacting]
     Active Substance: AXITINIB
     Dosage: 4 MG, 2X/DAY
     Route: 048
     Dates: start: 202503
  3. COVID-19 VACCINE NOS [Interacting]
     Active Substance: COVID-19 VACCINE
     Indication: COVID-19 immunisation

REACTIONS (3)
  - Drug interaction [Unknown]
  - Abdominal pain upper [Unknown]
  - Headache [Unknown]
